FAERS Safety Report 10179130 (Version 1)
Quarter: 2014Q2

REPORT INFORMATION
  Report Type: Report from Study
  Country: TW (occurrence: TW)
  Receive Date: 20140519
  Receipt Date: 20140519
  Transmission Date: 20141212
  Serious: Yes (Death)
  Sender: FDA-Public Use
  Company Number: TW-PFIZER INC-2014133286

PATIENT
  Age: 80 Year
  Sex: Male

DRUGS (1)
  1. PIPERACILLIN/TAZOBACTAM [Suspect]
     Indication: PNEUMONIA

REACTIONS (2)
  - Drug reaction with eosinophilia and systemic symptoms [Fatal]
  - Sepsis [None]
